FAERS Safety Report 5320009-3 (Version None)
Quarter: 2007Q2

REPORT INFORMATION
  Report Type: 
  Country: None (occurrence: None)
  Receive Date: 20070509
  Receipt Date: 20070507
  Transmission Date: 20071010
  Serious: Yes (Other)
  Sender: FDA-Public Use
  Company Number: US-BRISTOL-MYERS SQUIBB COMPANY-13771001

PATIENT
  Age: 23 Year
  Sex: Male

DRUGS (4)
  1. MITOMYCIN-C BULK POWDER [Suspect]
     Indication: VISION CORRECTION OPERATION
     Route: 021
  2. CILOXAN [Suspect]
     Route: 061
  3. ARTIFICIAL TEARS [Suspect]
     Route: 047
  4. ANALGESICS [Suspect]
     Route: 048

REACTIONS (1)
  - CORNEAL OPACITY [None]
